FAERS Safety Report 6299424-X (Version None)
Quarter: 2009Q3

REPORT INFORMATION
  Report Type: 
  Country: None (occurrence: None)
  Receive Date: 20090806
  Receipt Date: 20090730
  Transmission Date: 20100115
  Serious: Yes (Other)
  Sender: FDA-Public Use
  Company Number: RU-AVENTIS-200914518EU

PATIENT
  Age: 61 Year
  Sex: Female
  Weight: 80 kg

DRUGS (11)
  1. ENOXAPARIN SODIUM [Suspect]
     Indication: THROMBOSIS PROPHYLAXIS
     Route: 058
     Dates: start: 20090202, end: 20090205
  2. ENAP                               /00574901/ [Concomitant]
  3. EUTHYROX [Concomitant]
  4. PANCREATIN [Concomitant]
  5. ESSLIVER FORTE                     /04296701/ [Concomitant]
  6. PROMEDOL [Concomitant]
  7. ACETAMINOPHEN [Concomitant]
  8. CEFAZOLIN AND DEXTROSE [Concomitant]
  9. CEFTRIAXONE [Concomitant]
  10. KETOROL [Concomitant]
  11. ACIPOL (LACTOBACILLUS ACIDOPHILUS) [Concomitant]

REACTIONS (1)
  - HEPATIC ENZYME INCREASED [None]
